FAERS Safety Report 5651372-1 (Version None)
Quarter: 2008Q1

REPORT INFORMATION
  Report Type: 
  Country: None (occurrence: None)
  Receive Date: 20080305
  Receipt Date: 20080221
  Transmission Date: 20080703
  Serious: Yes (Other)
  Sender: FDA-Public Use
  Company Number: JP-ELI_LILLY_AND_COMPANY-JP200803000039

PATIENT
  Sex: Female

DRUGS (3)
  1. EVISTA [Suspect]
     Route: 048
  2. IODINE [Concomitant]
     Indication: BASEDOW'S DISEASE
     Dosage: UNK, UNK
     Route: 048
  3. AMLODIN [Concomitant]
     Route: 048

REACTIONS (1)
  - RHABDOMYOLYSIS [None]
